FAERS Safety Report 20749282 (Version 1)
Quarter: 2022Q2

REPORT INFORMATION
  Report Type: Spontaneous
  Country: FR (occurrence: FR)
  Receive Date: 20220426
  Receipt Date: 20220426
  Transmission Date: 20220721
  Serious: Yes (Other)
  Sender: FDA-Public Use
  Company Number: FR-SA-2018SA070850

PATIENT
  Sex: Female

DRUGS (16)
  1. GABAPENTIN [Suspect]
     Active Substance: GABAPENTIN
     Indication: Epilepsy
     Dosage: 400 MILLIGRAM, QD ( 1 TABLET IN THE EVENING)
     Route: 048
     Dates: end: 200803
  2. GABAPENTIN [Suspect]
     Active Substance: GABAPENTIN
     Dosage: 1200 MILLIGRAM, QD, START OCT-1995
     Route: 048
  3. GABAPENTIN [Suspect]
     Active Substance: GABAPENTIN
     Dosage: 3 DOSAGE FORM, QD (400 MG), START 24-AUG-1996
  4. GABAPENTIN [Suspect]
     Active Substance: GABAPENTIN
     Dosage: 3 DOSAGE FORM (STRENGTH 400 MG), START 1997
     Route: 048
  5. GABAPENTIN [Suspect]
     Active Substance: GABAPENTIN
     Dosage: 3 DOSAGE FORM, QD (400 MG), START 22-FEB-1999
  6. GABAPENTIN [Suspect]
     Active Substance: GABAPENTIN
     Dosage: 3 DOSAGE FORM, START 16-JAN-1996
     Route: 048
  7. VALPROATE SODIUM [Suspect]
     Active Substance: VALPROATE SODIUM
     Indication: Epilepsy
     Dosage: 2 DOSAGE FORM, QD (STRENGTH 500 MG)
     Route: 048
     Dates: start: 199411
  8. VALPROATE SODIUM [Suspect]
     Active Substance: VALPROATE SODIUM
     Dosage: 750 MILLIGRAM MORNING AND EVENING
     Route: 048
     Dates: start: 19950224
  9. VALPROATE SODIUM [Suspect]
     Active Substance: VALPROATE SODIUM
     Dosage: 3 DOSAGE FORM, QD
     Route: 048
     Dates: start: 19960824
  10. VALPROATE SODIUM [Suspect]
     Active Substance: VALPROATE SODIUM
     Dosage: 1.5 GRAM
     Route: 048
     Dates: start: 19951027
  11. VALPROATE SODIUM [Suspect]
     Active Substance: VALPROATE SODIUM
     Dosage: 1 DOSAGE FORM, BID (500 MG STRENGTH)
     Dates: start: 19951010
  12. VALPROATE SODIUM [Suspect]
     Active Substance: VALPROATE SODIUM
     Dosage: 3 DOSAGE FORM, QD (STRENGTH 500 MG)
     Route: 048
     Dates: end: 201601
  13. VALPROATE SODIUM [Suspect]
     Active Substance: VALPROATE SODIUM
     Dosage: 2 DOSAGE FORM, QD (500 MG)
     Dates: start: 19990222
  14. VALPROATE SODIUM [Suspect]
     Active Substance: VALPROATE SODIUM
     Dosage: 1000 MILLIGRAM, QD
     Dates: start: 201601
  15. LORATADINE [Concomitant]
     Active Substance: LORATADINE
     Indication: Asthma
     Dosage: UNK
     Route: 065
  16. FOLIC ACID [Concomitant]
     Active Substance: FOLIC ACID
     Dosage: UNK
     Route: 065

REACTIONS (14)
  - Loss of consciousness [Unknown]
  - Epilepsy [Unknown]
  - Polycystic ovaries [Unknown]
  - Disturbance in attention [Recovered/Resolved]
  - Speech disorder [Unknown]
  - Irritability [Unknown]
  - Balance disorder [Unknown]
  - Stress [Unknown]
  - Influenza like illness [Unknown]
  - Fatigue [Unknown]
  - Somnolence [Unknown]
  - Malaise [Unknown]
  - Headache [Recovered/Resolved]
  - Exposure during pregnancy [Unknown]

NARRATIVE: CASE EVENT DATE: 19950201
